FAERS Safety Report 6159224-8 (Version None)
Quarter: 2009Q2

REPORT INFORMATION
  Report Type: 
  Country: None (occurrence: None)
  Receive Date: 20090417
  Receipt Date: 20090401
  Transmission Date: 20091009
  Serious: Yes (Hospitalization, Other)
  Sender: FDA-Public Use
  Company Number: JP-PFIZER INC-2009184060

PATIENT

DRUGS (2)
  1. ZOLOFT [Suspect]
     Indication: DEPRESSION
     Dosage: 25 MG, 3X/DAY
     Route: 048
     Dates: start: 20090209, end: 20090310
  2. ANAFRANIL [Suspect]
     Indication: DEPRESSION
     Dosage: 10 MG, 4X/DAY
     Route: 048
     Dates: start: 20080510, end: 20090209

REACTIONS (7)
  - AGGRESSION [None]
  - AGITATION [None]
  - ANXIETY [None]
  - EMOTIONAL DISORDER [None]
  - FEAR [None]
  - HOMICIDAL IDEATION [None]
  - RESTLESSNESS [None]
